FAERS Safety Report 4686431-3 (Version None)
Quarter: 2005Q2

REPORT INFORMATION
  Report Type: 
  Country: None (occurrence: None)
  Receive Date: 20050607
  Receipt Date: 20050521
  Transmission Date: 20051028
  Serious: Yes (Other)
  Sender: FDA-Public Use
  Company Number: EWC050443753

PATIENT
  Sex: Male

DRUGS (11)
  1. ALIMTA [Suspect]
     Indication: MESOTHELIOMA
     Dates: start: 20050101
  2. HEPAVIT(HYDROXOCOBALAMIN ACETATE) [Concomitant]
  3. DEXAMETHASONE [Concomitant]
  4. ALDACTONE   /SCH/(SPIRONOLACTONE) [Concomitant]
  5. LEFAXIN(DIMETICONE, ACTIVATED) [Concomitant]
  6. ELEVIT PRONATAL [Concomitant]
  7. MAGNESIUM VERLA (MAGNESIUM HYDROGEN ASPARTATE) [Concomitant]
  8. PANTOPRAZOLE SODIUM [Concomitant]
  9. METOCLOPRAMIDE HYDROCHLORIDE [Concomitant]
  10. ALLOPURINOL [Concomitant]
  11. THAMAL(TRAMADOL HYDROCHLORIDE) [Concomitant]

REACTIONS (3)
  - CYANOSIS [None]
  - RAYNAUD'S PHENOMENON [None]
  - SKIN NECROSIS [None]
